FAERS Safety Report 13529528 (Version 1)
Quarter: 2017Q2

REPORT INFORMATION
  Report Type: Spontaneous
  Country: US (occurrence: US)
  Receive Date: 20170509
  Receipt Date: 20170509
  Transmission Date: 20170830
  Serious: No
  Sender: FDA-Public Use
  Company Number: US-ROCHE-1013383

PATIENT
  Sex: Male
  Weight: 95.34 kg

DRUGS (1)
  1. XOLAIR [Suspect]
     Active Substance: OMALIZUMAB
     Indication: URTICARIA
     Dosage: LASR DOSE: /JUNE/2011
     Route: 065
     Dates: start: 201102

REACTIONS (1)
  - Expired product administered [Unknown]
